FAERS Safety Report 8513059-7 (Version None)
Quarter: 2012Q3

REPORT INFORMATION
  Report Type: 
  Country: None (occurrence: None)
  Receive Date: 20120716
  Receipt Date: 20120710
  Transmission Date: 20120928
  Serious: Yes (Life-Threatening, Other)
  Sender: FDA-Public Use
  Company Number: US-ASTRAZENECA-2012SE47564

PATIENT
  Age: 50 Year
  Sex: Male

DRUGS (1)
  1. CRESTOR [Suspect]
     Route: 048

REACTIONS (4)
  - BLOOD GLUCOSE INCREASED [None]
  - HYPERTENSION [None]
  - DIABETIC COMA [None]
  - INTENTIONAL DRUG MISUSE [None]
